FAERS Safety Report 22279233 (Version 1)
Quarter: 2023Q2

REPORT INFORMATION
  Report Type: Spontaneous
  Country: US (occurrence: US)
  Receive Date: 20230503
  Receipt Date: 20230503
  Transmission Date: 20230722
  Serious: Yes (Other)
  Sender: FDA-Public Use
  Company Number: US-Stemline Therapeutics, Inc.-2023ST000605

PATIENT
  Age: 93 Year
  Sex: Female

DRUGS (1)
  1. ORSERDU [Suspect]
     Active Substance: ELACESTRANT
     Indication: Prophylaxis
     Route: 048

REACTIONS (3)
  - Dementia [Unknown]
  - Hallucination [Unknown]
  - Off label use [Recovered/Resolved]
